FAERS Safety Report 17404509 (Version 4)
Quarter: 2020Q1

REPORT INFORMATION
  Report Type: Spontaneous
  Country: US (occurrence: US)
  Receive Date: 20200211
  Receipt Date: 20200220
  Transmission Date: 20200409
  Serious: Yes (Hospitalization)
  Sender: FDA-Public Use
  Company Number: US-GE HEALTHCARE LIFE SCIENCES-2020CSU000506

PATIENT
  Age: 64 Year
  Sex: Male
  Weight: 128.2 kg

DRUGS (10)
  1. LORATADINE. [Concomitant]
     Active Substance: LORATADINE
     Dosage: 10 MG, QD
     Route: 048
  2. FENTANYL. [Concomitant]
     Active Substance: FENTANYL
     Dosage: 50 MCG, UNK
     Route: 042
  3. VISIPAQUE [Suspect]
     Active Substance: IODIXANOL
     Indication: CATHETERISATION CARDIAC
     Dosage: 10 ML, SINGLE
     Route: 013
     Dates: start: 20200116, end: 20200116
  4. LIDOCAINE. [Concomitant]
     Active Substance: LIDOCAINE
     Dosage: 20 ML, UNK
     Route: 058
  5. VISIPAQUE [Suspect]
     Active Substance: IODIXANOL
     Indication: CHEST PAIN
  6. METOPROLOL TARTRATE. [Concomitant]
     Active Substance: METOPROLOL TARTRATE
     Dosage: 50 MG, BID
     Route: 048
  7. VISIPAQUE [Suspect]
     Active Substance: IODIXANOL
     Indication: CORONARY ARTERY DISEASE
  8. CHLORTHALIDONE. [Concomitant]
     Active Substance: CHLORTHALIDONE
     Dosage: 25 MG, QD
     Route: 048
  9. VISIPAQUE [Suspect]
     Active Substance: IODIXANOL
     Indication: DISEASE RISK FACTOR
  10. MIDAZOLAM HYDROCHLORIDE. [Concomitant]
     Active Substance: MIDAZOLAM HYDROCHLORIDE
     Dosage: 2 MG, UNK
     Route: 042

REACTIONS (1)
  - Hypersensitivity [Recovered/Resolved]

NARRATIVE: CASE EVENT DATE: 20200116
